FAERS Safety Report 18965009 (Version 1)
Quarter: 2021Q1

REPORT INFORMATION
  Report Type: Spontaneous
  Country: US (occurrence: US)
  Receive Date: 20210303
  Receipt Date: 20210303
  Transmission Date: 20210420
  Serious: No
  Sender: FDA-Public Use
  Company Number: US-AMNEAL PHARMACEUTICALS-2020-AMRX-01845

PATIENT
  Sex: Male

DRUGS (2)
  1. RYTARY [Suspect]
     Active Substance: CARBIDOPA\LEVODOPA
     Dosage: 48.75?195MG, 3 CAPSULES 4 TIMES DAILY
     Route: 048
     Dates: start: 20200625
  2. RYTARY [Suspect]
     Active Substance: CARBIDOPA\LEVODOPA
     Indication: PARKINSON^S DISEASE
     Dosage: 36.25?145MG, 3 CAPSULES, 3 /DAY
     Route: 048

REACTIONS (3)
  - Therapeutic product effect variable [Unknown]
  - Drug ineffective [Unknown]
  - Therapeutic response shortened [Unknown]
